FAERS Safety Report 23842847 (Version 1)
Quarter: 2024Q2

REPORT INFORMATION
  Report Type: Spontaneous
  Country: US (occurrence: None)
  Receive Date: 20240509
  Receipt Date: 20240509
  Transmission Date: 20240715
  Serious: Yes (Life-Threatening, Hospitalization, Disabling)
  Sender: FDA-Public Use
  Company Number: None

PATIENT
  Age: 67 Year
  Sex: Male
  Weight: 87.32 kg

DRUGS (12)
  1. ROSUVASTATIN CALCIUM [Suspect]
     Active Substance: ROSUVASTATIN CALCIUM
     Indication: Blood cholesterol increased
     Dosage: FREQUENCY : AT BEDTIME;?
     Dates: start: 20180101, end: 20240401
  2. TAMSULOSIN [Concomitant]
     Active Substance: TAMSULOSIN
  3. OMEPRAZOLE [Concomitant]
     Active Substance: DONEPEZIL HYDROCHLORIDE\OMEPRAZOLE\OMEPRAZOLE MAGNESIUM
  4. ROSUVASTATIN [Concomitant]
     Active Substance: ROSUVASTATIN
  5. GABAPENTIN [Concomitant]
     Active Substance: GABAPENTIN
  6. ALLOPURINOL [Concomitant]
     Active Substance: ALLOPURINOL
  7. METFORMIN [Concomitant]
     Active Substance: METFORMIN HYDROCHLORIDE
  8. LIDOCAINE [Concomitant]
     Active Substance: LIDOCAINE
  9. VITAMIN D3 [Concomitant]
     Active Substance: CHOLECALCIFEROL
  10. VITAMINS A [Concomitant]
  11. VITAMINS B [Concomitant]
  12. ASCORBIC ACID [Concomitant]
     Active Substance: ASCORBIC ACID

REACTIONS (3)
  - Pain in extremity [None]
  - Pain in extremity [None]
  - Walking aid user [None]

NARRATIVE: CASE EVENT DATE: 20190101
